FAERS Safety Report 20130778 (Version 2)
Quarter: 2021Q4

REPORT INFORMATION
  Report Type: Other
  Country: JP (occurrence: JP)
  Receive Date: 20211130
  Receipt Date: 20211206
  Transmission Date: 20220303
  Serious: Yes (Other)
  Sender: FDA-Public Use
  Company Number: JP-CHUGAI-2021028746

PATIENT
  Age: 8 Year
  Sex: Male

DRUGS (2)
  1. EMICIZUMAB [Suspect]
     Active Substance: EMICIZUMAB
     Indication: Haemophilia A with anti factor VIII
     Route: 058
     Dates: start: 20180709
  2. EMICIZUMAB [Suspect]
     Active Substance: EMICIZUMAB
     Route: 058

REACTIONS (1)
  - Haemarthrosis [Unknown]

NARRATIVE: CASE EVENT DATE: 20211118
